FAERS Safety Report 25425817 (Version 2)
Quarter: 2025Q4

REPORT INFORMATION
  Report Type: Spontaneous
  Country: US (occurrence: US)
  Receive Date: 20250611
  Receipt Date: 20251013
  Transmission Date: 20260118
  Serious: Yes (Other)
  Sender: AMGEN
  Company Number: US-AMGEN-USASP2025114110

PATIENT

DRUGS (3)
  1. PREDNISONE [Suspect]
     Active Substance: PREDNISONE
     Indication: Immunosuppressant drug therapy
     Dosage: UNK UNK, QD (MG/DAY)
     Route: 065
  2. MYCOPHENOLATE MOFETIL [Concomitant]
     Active Substance: MYCOPHENOLATE MOFETIL
     Indication: Immunosuppressant drug therapy
     Dosage: UNK
  3. BELATACEPT [Concomitant]
     Active Substance: BELATACEPT
     Indication: Heart transplant
     Dosage: UNK

REACTIONS (13)
  - Heart transplant rejection [Unknown]
  - Epstein-Barr viraemia [Unknown]
  - Cytomegalovirus viraemia [Unknown]
  - Kaposi^s sarcoma [Unknown]
  - Prostate cancer [Unknown]
  - Polyomavirus viraemia [Unknown]
  - Cryptococcosis [Unknown]
  - Bronchopulmonary aspergillosis [Unknown]
  - Hordeolum [Unknown]
  - Donor specific antibody present [Unknown]
  - Folliculitis [Unknown]
  - Wound dehiscence [Unknown]
  - Diarrhoea [Unknown]
